FAERS Safety Report 16151294 (Version 1)
Quarter: 2019Q2

REPORT INFORMATION
  Report Type: Spontaneous
  Country: CN (occurrence: CN)
  Receive Date: 20190403
  Receipt Date: 20190403
  Transmission Date: 20190711
  Serious: Yes (Other)
  Sender: FDA-Public Use
  Company Number: CN-009507513-1903CHN012650

PATIENT
  Age: 49 Year
  Sex: Female

DRUGS (5)
  1. SULBACTAM [Concomitant]
     Active Substance: SULBACTAM
     Indication: ANTI-INFECTIVE THERAPY
     Dosage: UNK
     Dates: start: 201808
  2. LINEZOLID. [Concomitant]
     Active Substance: LINEZOLID
     Indication: ANTI-INFECTIVE THERAPY
     Dosage: 0.3 GRAM, Q12H
     Dates: start: 201808
  3. IMIPENEM AND CILASTATIN [Suspect]
     Active Substance: CILASTATIN SODIUM\IMIPENEM
     Indication: ANTI-INFECTIVE THERAPY
     Dosage: 0.5 GRAM, Q8H
  4. NORVANCOMYCIN HYDROCHLORIDE [Concomitant]
     Active Substance: NORVANCOMYCIN HYDROCHLORIDE
     Indication: ANTI-INFECTIVE THERAPY
     Dosage: 0.8 GRAM, Q12H
     Dates: start: 201808
  5. CEFOPERAZONE [Concomitant]
     Active Substance: CEFOPERAZONE
     Indication: ANTI-INFECTIVE THERAPY
     Dosage: 3 GRAM, Q8H
     Dates: start: 201808

REACTIONS (1)
  - Stenotrophomonas infection [Unknown]

NARRATIVE: CASE EVENT DATE: 201808
